FAERS Safety Report 22023803 (Version 1)
Quarter: 2023Q1

REPORT INFORMATION
  Report Type: Spontaneous
  Country: US (occurrence: None)
  Receive Date: 20230223
  Receipt Date: 20230223
  Transmission Date: 20230418
  Serious: No
  Sender: FDA-Public Use
  Company Number: US-ROCHE-3015708

PATIENT
  Sex: Male

DRUGS (5)
  1. XOLAIR [Suspect]
     Active Substance: OMALIZUMAB
     Indication: Product used for unknown indication
     Route: 058
  2. NITROGLYCERIN [Concomitant]
     Active Substance: NITROGLYCERIN
  3. METOPROLOL [Concomitant]
     Active Substance: METOPROLOL
  4. EYE DROPS (UNK INGREDIENTS) [Concomitant]
  5. ELIQUIS [Concomitant]
     Active Substance: APIXABAN

REACTIONS (1)
  - Diarrhoea [Unknown]
